FAERS Safety Report 11094486 (Version 2)
Quarter: 2015Q2

REPORT INFORMATION
  Report Type: Spontaneous
  Country: US (occurrence: US)
  Receive Date: 20150506
  Receipt Date: 20150617
  Transmission Date: 20150821
  Serious: No
  Sender: FDA-Public Use
  Company Number: US-GLAXOSMITHKLINE-US2015060228

PATIENT
  Sex: Female

DRUGS (1)
  1. FLONASE [Suspect]
     Active Substance: FLUTICASONE PROPIONATE
     Indication: PRODUCT USED FOR UNKNOWN INDICATION
     Dosage: UNK

REACTIONS (6)
  - Nonspecific reaction [Unknown]
  - Rhinorrhoea [Unknown]
  - Impaired driving ability [Unknown]
  - Somnolence [Unknown]
  - Disturbance in attention [Unknown]
  - Feeling abnormal [Unknown]
